FAERS Safety Report 7631390-4 (Version None)
Quarter: 2011Q3

REPORT INFORMATION
  Report Type: 
  Country: None (occurrence: None)
  Receive Date: 20110725
  Receipt Date: 20110714
  Transmission Date: 20111222
  Serious: Yes (Hospitalization, Other)
  Sender: FDA-Public Use
  Company Number: US-BAYER-201012522NA

PATIENT
  Age: 25 Year
  Sex: Female
  Weight: 113.38 kg

DRUGS (15)
  1. DROSPIRENONE AND ETHINYL ESTRADIOL [Suspect]
     Indication: MENSTRUATION IRREGULAR
     Dosage: UNK UNK, UNK
     Route: 048
     Dates: start: 20081201, end: 20090501
  2. PREVACID [Concomitant]
     Indication: ABDOMINAL PAIN
     Dosage: UNK
     Dates: start: 20090310
  3. DROSPIRENONE AND ETHINYL ESTRADIOL [Suspect]
     Indication: MENORRHAGIA
     Route: 048
     Dates: start: 20070101
  4. DROSPIRENONE AND ETHINYL ESTRADIOL [Suspect]
     Indication: POLYCYSTIC OVARIES
  5. YAZ [Suspect]
     Indication: MENSTRUATION IRREGULAR
     Dosage: UNK
     Dates: start: 20090501, end: 20090815
  6. YAZ [Suspect]
     Indication: MENORRHAGIA
  7. NAPROXEN [Concomitant]
     Indication: PRODUCT USED FOR UNKNOWN INDICATION
     Route: 065
  8. NEXIUM [Concomitant]
  9. FLUCONAZOLE [Concomitant]
  10. PHENERGAN HCL [Concomitant]
  11. YASMIN [Suspect]
     Indication: MENORRHAGIA
     Dosage: UNK
     Dates: start: 20080101, end: 20090101
  12. YASMIN [Suspect]
     Indication: MENSTRUATION IRREGULAR
     Dosage: UNK
     Dates: start: 20050101
  13. YASMIN [Suspect]
     Indication: POLYCYSTIC OVARIES
  14. YAZ [Suspect]
     Indication: POLYCYSTIC OVARIES
  15. TORADOL [Concomitant]

REACTIONS (12)
  - CHOLELITHIASIS [None]
  - CONSTIPATION [None]
  - DYSPEPSIA [None]
  - DIARRHOEA [None]
  - ANXIETY [None]
  - DEPRESSION [None]
  - HEADACHE [None]
  - CHOLESTEROSIS [None]
  - ABDOMINAL DISTENSION [None]
  - GALLBLADDER DISORDER [None]
  - SCAR [None]
  - CHOLECYSTITIS ACUTE [None]
